FAERS Safety Report 4604808-9 (Version None)
Quarter: 2005Q2

REPORT INFORMATION
  Report Type: 
  Country: None (occurrence: None)
  Receive Date: 20050218
  Receipt Date: 20041124
  Transmission Date: 20051028
  Serious: Yes (Other)
  Sender: FDA-Public Use
  Company Number: HQWYE738802DEC04

PATIENT
  Age: 4 Year
  Sex: Male

DRUGS (2)
  1. CHILDREN'S ADVIL COLD [Suspect]
     Indication: PHARYNGOLARYNGEAL PAIN
     Dosage: 1 TEASPOON EVERY 6 HOURS, ORAL
     Route: 048
     Dates: start: 20041123
  2. CHILDREN'S ADVIL COLD [Suspect]
     Indication: PYREXIA
     Dosage: 1 TEASPOON EVERY 6 HOURS, ORAL
     Route: 048
     Dates: start: 20041123

REACTIONS (2)
  - HEART RATE INCREASED [None]
  - RESPIRATORY RATE INCREASED [None]
